FAERS Safety Report 8258752-9 (Version None)
Quarter: 2012Q2

REPORT INFORMATION
  Report Type: 
  Country: None (occurrence: None)
  Receive Date: 20120404
  Receipt Date: 20120404
  Transmission Date: 20120825
  Serious: Yes (Other)
  Sender: FDA-Public Use
  Company Number: None

PATIENT
  Age: 69 Year
  Sex: Female
  Weight: 52.616 kg

DRUGS (1)
  1. VIIBRYD [Suspect]
     Indication: MAJOR DEPRESSION
     Dosage: STARTER PACKAGE: 1 10MG TAB
     Route: 048
     Dates: start: 20120307, end: 20120307

REACTIONS (6)
  - ECONOMIC PROBLEM [None]
  - HAEMATOCHEZIA [None]
  - DIARRHOEA [None]
  - MUCOUS STOOLS [None]
  - CONDITION AGGRAVATED [None]
  - PROCTITIS ULCERATIVE [None]
